FAERS Safety Report 26174486 (Version 1)
Quarter: 2025Q4

REPORT INFORMATION
  Report Type: Spontaneous
  Country: US (occurrence: US)
  Receive Date: 20251218
  Receipt Date: 20251218
  Transmission Date: 20260118
  Serious: No
  Sender: AMARIN PHARMA, INC.
  Company Number: US-Amarin Pharma  Inc-2025AMR000716

PATIENT
  Sex: Female

DRUGS (1)
  1. VASCEPA [Suspect]
     Active Substance: ICOSAPENT ETHYL
     Indication: Product used for unknown indication
     Dosage: UNKNOWN
     Route: 065
     Dates: start: 202510

REACTIONS (4)
  - Lacrimation increased [Unknown]
  - Sinus disorder [Unknown]
  - Oesophageal oedema [Unknown]
  - Myalgia [Unknown]

NARRATIVE: CASE EVENT DATE: 20251001
